FAERS Safety Report 9976404 (Version 1)
Quarter: 2014Q1

REPORT INFORMATION
  Report Type: Report from Study
  Country: US (occurrence: US)
  Receive Date: 20140306
  Receipt Date: 20140306
  Transmission Date: 20141002
  Serious: Yes (Hospitalization)
  Sender: FDA-Public Use
  Company Number: US-ABBVIE-13P-163-1165542-00

PATIENT
  Age: 87 Year
  Sex: Male

DRUGS (8)
  1. HUMIRA [Suspect]
     Indication: ANKYLOSING SPONDYLITIS
     Dates: start: 20130509, end: 20130523
  2. ALBUTEROL INHALER [Concomitant]
     Indication: CHRONIC OBSTRUCTIVE PULMONARY DISEASE
  3. DILTIAZEM [Concomitant]
     Indication: BLOOD PRESSURE
  4. BENAZEPRIL [Concomitant]
     Indication: BLOOD PRESSURE
  5. XOPENEX [Concomitant]
     Indication: RESPIRATORY DISORDER
  6. ADVAIR [Concomitant]
     Indication: CHRONIC OBSTRUCTIVE PULMONARY DISEASE
  7. OMEPRAZOLE [Concomitant]
     Indication: DYSPEPSIA
  8. ALENDRONATE [Concomitant]
     Indication: BONE DISORDER
     Dosage: Q SUNDAY

REACTIONS (4)
  - Pneumonia [Not Recovered/Not Resolved]
  - Nausea [Unknown]
  - Unevaluable event [Unknown]
  - Fatigue [Unknown]
